FAERS Safety Report 6479944-5 (Version None)
Quarter: 2009Q4

REPORT INFORMATION
  Report Type: 
  Country: None (occurrence: None)
  Receive Date: 20091208
  Receipt Date: 20091116
  Transmission Date: 20100525
  Serious: Yes (Other)
  Sender: FDA-Public Use
  Company Number: JP-SANOFI-AVENTIS-2009SA002799

PATIENT
  Age: 75 Year
  Sex: Female

DRUGS (2)
  1. TAXOTERE [Suspect]
     Indication: GINGIVAL CANCER
     Route: 013
  2. ALL OTHER THERAPEUTIC PRODUCTS [Suspect]
     Route: 048

REACTIONS (2)
  - COMPRESSION FRACTURE [None]
  - SKIN EXFOLIATION [None]
